FAERS Safety Report 4357806-7 (Version None)
Quarter: 2004Q2

REPORT INFORMATION
  Report Type: 
  Country: None (occurrence: None)
  Receive Date: 20040513
  Receipt Date: 20040507
  Transmission Date: 20050107
  Serious: Yes (Death)
  Sender: FDA-Public Use
  Company Number: US-MERCK-0405USA00429

PATIENT
  Age: 60 Year
  Sex: Male

DRUGS (2)
  1. VIOXX [Suspect]
     Indication: ARTHRALGIA
     Route: 048
  2. ZOCOR [Concomitant]
     Route: 065

REACTIONS (1)
  - MYOCARDIAL INFARCTION [None]
